FAERS Safety Report 6051014-X (Version None)
Quarter: 2009Q1

REPORT INFORMATION
  Report Type: 
  Country: None (occurrence: None)
  Receive Date: 20090126
  Receipt Date: 20081216
  Transmission Date: 20090719
  Serious: No
  Sender: FDA-Public Use
  Company Number: US-TYCO HEALTHCARE/MALLINCKRODT-T200802117

PATIENT
  Sex: Male

DRUGS (3)
  1. OPTIRAY 300 [Suspect]
     Indication: COMPUTERISED TOMOGRAM
     Dosage: 120 ML, SINGLE
     Route: 042
     Dates: start: 20081010, end: 20081010
  2. PREDNISONE TAB [Concomitant]
     Indication: PREMEDICATION
     Dosage: 50 MG, 13, 2 AND 1 HR PRIOR TO CT SCAN
     Route: 048
     Dates: start: 20081001, end: 20081010
  3. BENADRYL [Concomitant]
     Indication: PREMEDICATION
     Dosage: 50 MG, 13, 2 AND 1 HR PRIOR TO CT SCAN
     Route: 048
     Dates: start: 20081001, end: 20081010

REACTIONS (4)
  - CHEST PAIN [None]
  - ERYTHEMA [None]
  - HEART RATE INCREASED [None]
  - PRURITUS GENERALISED [None]
